FAERS Safety Report 23218410 (Version 1)
Quarter: 2023Q4

REPORT INFORMATION
  Report Type: Spontaneous
  Country: US (occurrence: None)
  Receive Date: 20231122
  Receipt Date: 20231122
  Transmission Date: 20240110
  Serious: No
  Sender: FDA-Public Use
  Company Number: None

PATIENT
  Age: 3 Month
  Sex: Male
  Weight: 3.87 kg

DRUGS (2)
  1. BEYFORTUS [Suspect]
     Active Substance: NIRSEVIMAB-ALIP
     Dosage: FREQUENCY : ONCE;?
     Route: 030
  2. Beyfortus 50 mg IM x 1 [Concomitant]
     Dates: start: 20231102, end: 20231102

REACTIONS (1)
  - Product administration error [None]

NARRATIVE: CASE EVENT DATE: 20231121
